FAERS Safety Report 8185165-0 (Version None)
Quarter: 2012Q1

REPORT INFORMATION
  Report Type: 
  Country: None (occurrence: None)
  Receive Date: 20120305
  Receipt Date: 20120224
  Transmission Date: 20120608
  Serious: Yes (Other)
  Sender: FDA-Public Use
  Company Number: US-ROCHE-1032440

PATIENT
  Sex: Male

DRUGS (1)
  1. ZELBORAF [Suspect]
     Indication: PRODUCT USED FOR UNKNOWN INDICATION

REACTIONS (9)
  - NAUSEA [None]
  - VOMITING [None]
  - HEADACHE [None]
  - CHILLS [None]
  - DIZZINESS [None]
  - FURUNCLE [None]
  - DECREASED APPETITE [None]
  - RASH [None]
  - ALOPECIA [None]
